FAERS Safety Report 12361816 (Version 1)
Quarter: 2016Q2

REPORT INFORMATION
  Report Type: Spontaneous
  Country: US (occurrence: US)
  Receive Date: 20160512
  Receipt Date: 20160512
  Transmission Date: 20160815
  Serious: Yes (Other)
  Sender: FDA-Public Use
  Company Number: US-SA-2016SA063583

PATIENT
  Age: 69 Year
  Sex: Female

DRUGS (2)
  1. PRALUENT [Suspect]
     Active Substance: ALIROCUMAB
     Route: 058
  2. ALIROCUMAB PREFILLED PEN [Concomitant]
     Active Substance: ALIROCUMAB

REACTIONS (5)
  - Fatigue [Unknown]
  - Nausea [Unknown]
  - Increased appetite [Unknown]
  - Urinary tract infection [Unknown]
  - Myalgia [Unknown]

NARRATIVE: CASE EVENT DATE: 2016
